FAERS Safety Report 6801753-5 (Version None)
Quarter: 2010Q2

REPORT INFORMATION
  Report Type: 
  Country: None (occurrence: None)
  Receive Date: 20100629
  Receipt Date: 20100614
  Transmission Date: 20101027
  Serious: Yes (Hospitalization)
  Sender: FDA-Public Use
  Company Number: DE-TEVA-238948ISR

PATIENT
  Age: 65 Year
  Sex: Male

DRUGS (8)
  1. AZILECT [Suspect]
     Route: 048
  2. CARBIDOPA AND LEVODOPA [Suspect]
  3. ROTIGOTINE [Suspect]
     Indication: PARKINSON'S DISEASE
  4. SINEMET [Concomitant]
  5. LISINOPRIL [Concomitant]
  6. METOPROLOL [Concomitant]
  7. AMANTADINE HYDROCHLORIDE [Concomitant]
  8. VARDENAFIL HYDROCHLORIDE (LEVITRA) [Concomitant]

REACTIONS (2)
  - SUDDEN ONSET OF SLEEP [None]
  - VARICOSE VEIN [None]
